FAERS Safety Report 12907855 (Version 3)
Quarter: 2016Q4

REPORT INFORMATION
  Report Type: Spontaneous
  Country: US (occurrence: US)
  Receive Date: 20161103
  Receipt Date: 20161128
  Transmission Date: 20170207
  Serious: Yes (Hospitalization)
  Sender: FDA-Public Use
  Company Number: US-PFIZER INC-2016508728

PATIENT
  Age: 53 Year
  Sex: Female

DRUGS (5)
  1. LUNESTA [Concomitant]
     Active Substance: ESZOPICLONE
     Dosage: UNK
     Dates: start: 2011
  2. LYRICA [Suspect]
     Active Substance: PREGABALIN
     Indication: NERVE INJURY
     Dosage: 100 MG, 2X/DAY
     Dates: start: 2005
  3. MOBIC [Concomitant]
     Active Substance: MELOXICAM
     Dosage: UNK
     Dates: start: 2011
  4. HYDROCODONE [Concomitant]
     Active Substance: HYDROCODONE
     Dosage: UNK
     Dates: start: 2005
  5. LIDODERM [Concomitant]
     Active Substance: LIDOCAINE
     Indication: NERVE INJURY
     Dosage: PATCH-12 HRS ON 12 HRS OFF
     Dates: start: 2005

REACTIONS (5)
  - Back pain [Unknown]
  - Dyspnoea [Not Recovered/Not Resolved]
  - Back injury [Unknown]
  - Intentional product misuse [Not Recovered/Not Resolved]
  - Stress [Not Recovered/Not Resolved]

NARRATIVE: CASE EVENT DATE: 20161114
